FAERS Safety Report 14895408 (Version 1)
Quarter: 2018Q2

REPORT INFORMATION
  Report Type: Spontaneous
  Country: FR (occurrence: FR)
  Receive Date: 20180515
  Receipt Date: 20180515
  Transmission Date: 20180711
  Serious: Yes (Other)
  Sender: FDA-Public Use
  Company Number: FR-MERCK KGAA-2047748

PATIENT
  Age: 26 Year
  Sex: Female

DRUGS (1)
  1. NOVOTHYROX [Suspect]
     Active Substance: LEVOTHYROXINE SODIUM
     Indication: PRODUCT USED FOR UNKNOWN INDICATION

REACTIONS (39)
  - Osteoarthritis [None]
  - Alopecia [None]
  - Impaired driving ability [None]
  - Muscle contracture [None]
  - Dizziness [None]
  - Breast tenderness [None]
  - Tremor [None]
  - Gastrointestinal disorder [None]
  - Glycosylated haemoglobin increased [None]
  - Diarrhoea [None]
  - Thirst [None]
  - Back pain [None]
  - Impaired work ability [None]
  - Constipation [None]
  - Palpitations [None]
  - Dyspnoea [None]
  - Visual acuity reduced [None]
  - Depression [None]
  - Irritability [None]
  - Disturbance in attention [None]
  - Musculoskeletal stiffness [None]
  - Anxiety [None]
  - Speech disorder [None]
  - Fatigue [None]
  - Dyspepsia [None]
  - Arthralgia [None]
  - Decreased appetite [None]
  - Blood thyroid stimulating hormone increased [None]
  - Gastritis [None]
  - Chest pain [None]
  - Menstrual disorder [None]
  - Abortion spontaneous [None]
  - Migraine [None]
  - Uterine disorder [None]
  - Crying [None]
  - Impatience [None]
  - Insomnia [None]
  - Food intolerance [None]
  - Blood prolactin increased [None]

NARRATIVE: CASE EVENT DATE: 201706
